FAERS Safety Report 7669097-X (Version None)
Quarter: 2011Q3

REPORT INFORMATION
  Report Type: 
  Country: None (occurrence: None)
  Receive Date: 20110808
  Receipt Date: 20110728
  Transmission Date: 20111222
  Serious: Yes (Other)
  Sender: FDA-Public Use
  Company Number: US-SANOFI-AVENTIS-2011SA033037

PATIENT
  Age: 71 Year
  Sex: Female
  Weight: 70.3 kg

DRUGS (6)
  1. OPTICLICK [Suspect]
     Indication: TYPE 2 DIABETES MELLITUS
  2. GABAPENTIN [Concomitant]
  3. FOLIC ACID [Concomitant]
  4. LANTUS [Suspect]
     Indication: TYPE 2 DIABETES MELLITUS
     Dosage: DOSE:25 UNIT(S)
     Route: 058
  5. OPTICLICK [Suspect]
  6. METFORMIN HCL [Concomitant]

REACTIONS (7)
  - DRUG DOSE OMISSION [None]
  - HEADACHE [None]
  - PRODUCT QUALITY ISSUE [None]
  - DIZZINESS [None]
  - TOOTH INJURY [None]
  - FALL [None]
  - CONCUSSION [None]
